FAERS Safety Report 5893581-2 (Version None)
Quarter: 2008Q3

REPORT INFORMATION
  Report Type: 
  Country: None (occurrence: None)
  Receive Date: 20080923
  Receipt Date: 20080912
  Transmission Date: 20090109
  Serious: Yes (Hospitalization)
  Sender: FDA-Public Use
  Company Number: SE-BAUSCH-2008BL003965

PATIENT
  Age: 55 Year
  Sex: Female

DRUGS (1)
  1. DICLOFENAC [Suspect]

REACTIONS (4)
  - ABSCESS INTESTINAL [None]
  - INTESTINAL PERFORATION [None]
  - INTESTINAL ULCER [None]
  - SMALL INTESTINAL OBSTRUCTION [None]
